FAERS Safety Report 15399778 (Version 1)
Quarter: 2018Q3

REPORT INFORMATION
  Report Type: Report from Study
  Country: US (occurrence: US)
  Receive Date: 20180918
  Receipt Date: 20180918
  Transmission Date: 20181010
  Serious: Yes (Other)
  Sender: FDA-Public Use
  Company Number: US-UCBSA-2018039988

PATIENT

DRUGS (1)
  1. LEVETIRACETAM. [Suspect]
     Active Substance: LEVETIRACETAM
     Indication: PRODUCT USED FOR UNKNOWN INDICATION
     Dosage: UNK

REACTIONS (6)
  - Focal dyscognitive seizures [Unknown]
  - Status epilepticus [Unknown]
  - Generalised tonic-clonic seizure [Unknown]
  - Subdural haematoma [Unknown]
  - Migraine [Not Recovered/Not Resolved]
  - Partial seizures [Not Recovered/Not Resolved]
